FAERS Safety Report 20746312 (Version 1)
Quarter: 2022Q2

REPORT INFORMATION
  Report Type: Spontaneous
  Country: US (occurrence: US)
  Receive Date: 20220425
  Receipt Date: 20220425
  Transmission Date: 20220720
  Serious: No
  Sender: FDA-Public Use
  Company Number: US-PFIZER INC-202100928350

PATIENT
  Age: 3 Year
  Sex: Female

DRUGS (2)
  1. SIROLIMUS [Suspect]
     Active Substance: SIROLIMUS
     Indication: Congenital anomaly
     Dosage: 0.5 MG, 2X/DAY DAILY
     Route: 048
     Dates: start: 20200326
  2. SIROLIMUS [Suspect]
     Active Substance: SIROLIMUS
     Dosage: UNK
     Dates: start: 20200420

REACTIONS (8)
  - Pyrexia [Unknown]
  - Lip pain [Unknown]
  - Lip swelling [Unknown]
  - Pain in jaw [Unknown]
  - Swelling face [Unknown]
  - Off label use [Unknown]
  - Off label use [Unknown]
  - Drug effective for unapproved indication [Unknown]

NARRATIVE: CASE EVENT DATE: 20200326
